FAERS Safety Report 26027270 (Version 1)
Quarter: 2025Q4

REPORT INFORMATION
  Report Type: Report from Study
  Country: US (occurrence: US)
  Receive Date: 20251111
  Receipt Date: 20251111
  Transmission Date: 20260117
  Serious: Yes (Hospitalization, Other)
  Sender: OTSUKA
  Company Number: US-OTSUKA-2024_025394

PATIENT
  Age: 65 Year
  Sex: Female

DRUGS (1)
  1. TOLVAPTAN [Suspect]
     Active Substance: TOLVAPTAN
     Indication: Congenital cystic kidney disease
     Dosage: UNK
     Route: 065

REACTIONS (12)
  - Leg amputation [Recovered/Resolved]
  - Essential hypertension [Unknown]
  - Left ventricular failure [Unknown]
  - Coronary artery disease [Unknown]
  - Spinal disorder [Unknown]
  - Spinal operation [Unknown]
  - Chronic kidney disease [Unknown]
  - Anaemia [Unknown]
  - Limb injury [Not Recovered/Not Resolved]
  - Fall [Not Recovered/Not Resolved]
  - Influenza [Unknown]
  - Pain in extremity [Not Recovered/Not Resolved]

NARRATIVE: CASE EVENT DATE: 20240909
